FAERS Safety Report 7680076-9 (Version None)
Quarter: 2011Q3

REPORT INFORMATION
  Report Type: 
  Country: None (occurrence: None)
  Receive Date: 20110811
  Receipt Date: 20110811
  Transmission Date: 20111222
  Serious: Yes (Disabling, Other)
  Sender: FDA-Public Use
  Company Number: None

PATIENT

DRUGS (2)
  1. REI MULTILEVEL PROTECTION SUNBLOCK [Suspect]
     Indication: PROPHYLAXIS
     Dosage: 1 TSP / WK 6 MO? SKIN
     Dates: start: 20070301, end: 20070901
  2. REI MULTILEVEL PROTECTION SUNBLOCK [Suspect]
     Indication: SKIN DISORDER
     Dosage: 1 TSP / WK 6 MO? SKIN
     Dates: start: 20070301, end: 20070901

REACTIONS (8)
  - LYMPHOEDEMA [None]
  - IMMUNE SYSTEM DISORDER [None]
  - CHEMICAL BURN OF SKIN [None]
  - GUILLAIN-BARRE SYNDROME [None]
  - PITYRIASIS RUBRA PILARIS [None]
  - LYMPHADENOPATHY [None]
  - SKIN EXFOLIATION [None]
  - KNEE ARTHROPLASTY [None]
